FAERS Safety Report 5164760-7 (Version None)
Quarter: 2006Q4

REPORT INFORMATION
  Report Type: 
  Country: None (occurrence: None)
  Receive Date: 20061124
  Receipt Date: 20061114
  Transmission Date: 20070319
  Serious: Yes (Other)
  Sender: FDA-Public Use
  Company Number: 8020356

PATIENT
  Age: 36 Year
  Sex: Female

DRUGS (3)
  1. KEPPRA [Suspect]
     Indication: COMPLEX PARTIAL SEIZURES
     Dosage: 4000 MG /D PO
     Route: 048
     Dates: start: 20030301
  2. LAMICTAL [Concomitant]
  3. MULTIVITAMIN /01229101/ [Concomitant]

REACTIONS (7)
  - ABORTION SPONTANEOUS [None]
  - CONDITION AGGRAVATED [None]
  - CONGENITAL CHOROID PLEXUS CYST [None]
  - CONVULSION [None]
  - DRUG EXPOSURE BEFORE PREGNANCY [None]
  - DRUG EXPOSURE DURING PREGNANCY [None]
  - PREGNANCY [None]
